FAERS Safety Report 14669463 (Version 1)
Quarter: 2018Q1

REPORT INFORMATION
  Report Type: Spontaneous
  Country: DE (occurrence: DE)
  Receive Date: 20180322
  Receipt Date: 20180322
  Transmission Date: 20180509
  Serious: Yes (Other)
  Sender: FDA-Public Use
  Company Number: DE-TEVA-2018-DE-872046

PATIENT
  Sex: Female

DRUGS (5)
  1. NEBIVOLOL. [Interacting]
     Active Substance: NEBIVOLOL
     Indication: ATRIAL FIBRILLATION
  2. NEBIVOLOL. [Suspect]
     Active Substance: NEBIVOLOL
     Indication: ARRHYTHMIA
     Route: 065
  3. COLECALCIFEROL [Concomitant]
     Active Substance: CHOLECALCIFEROL
     Route: 065
  4. EDOXABAN TOSILATE [Concomitant]
     Active Substance: EDOXABAN TOSYLATE
     Indication: ANTICOAGULANT THERAPY
     Route: 065
  5. CANDESARTAN. [Interacting]
     Active Substance: CANDESARTAN
     Dosage: 12 MILLIGRAM DAILY;
     Route: 048

REACTIONS (8)
  - Off label use [Not Recovered/Not Resolved]
  - Product use issue [Not Recovered/Not Resolved]
  - Arrhythmia [Unknown]
  - Drug interaction [Unknown]
  - Dyspnoea [Unknown]
  - Paraesthesia [Unknown]
  - Atrial fibrillation [Unknown]
  - Chest discomfort [Unknown]
